FAERS Safety Report 6007332-4 (Version None)
Quarter: 2008Q4

REPORT INFORMATION
  Report Type: 
  Country: None (occurrence: None)
  Receive Date: 20081217
  Receipt Date: 20080311
  Transmission Date: 20090506
  Serious: No
  Sender: FDA-Public Use
  Company Number: US-ASTRAZENECA-2008UW04945

PATIENT
  Age: 76 Year
  Sex: Female
  Weight: 58.5 kg

DRUGS (7)
  1. CRESTOR [Suspect]
     Indication: HYPERCHOLESTEROLAEMIA
     Route: 048
     Dates: start: 20080301
  2. AVALIDE [Concomitant]
  3. LEVOXYL [Concomitant]
  4. ASPIRIN [Concomitant]
  5. ENBREL [Concomitant]
  6. ACTONEL [Concomitant]
  7. NEXIUM [Concomitant]
     Route: 048

REACTIONS (1)
  - DRY MOUTH [None]
